FAERS Safety Report 8740419 (Version 2)
Quarter: 2013Q4

REPORT INFORMATION
  Report Type: Spontaneous
  Country: US (occurrence: US)
  Receive Date: 20120823
  Receipt Date: 20131101
  Transmission Date: 20140711
  Serious: No
  Sender: FDA-Public Use
  Company Number: US-009507513-1208USA005920

PATIENT
  Age: 55 Year
  Sex: Female

DRUGS (4)
  1. JANUMET [Suspect]
     Indication: DIABETES MELLITUS
     Dosage: 1000MG/50MG, BID
     Route: 048
     Dates: start: 201112
  2. FUROSEMIDE [Concomitant]
  3. KLOR-CON [Concomitant]
  4. METOPROLOL TARTRATE [Concomitant]

REACTIONS (1)
  - Diarrhoea [Not Recovered/Not Resolved]
